FAERS Safety Report 19031669 (Version 1)
Quarter: 2021Q1

REPORT INFORMATION
  Report Type: Spontaneous
  Country: DZ (occurrence: DZ)
  Receive Date: 20210319
  Receipt Date: 20210319
  Transmission Date: 20210420
  Serious: Yes (Death)
  Sender: FDA-Public Use
  Company Number: DZ-CELGENEUS-DZA-20210303852

PATIENT
  Sex: Female

DRUGS (7)
  1. ETOPOSIDE PHOSPHATE [Concomitant]
     Active Substance: ETOPOSIDE PHOSPHATE
     Indication: PRODUCT USED FOR UNKNOWN INDICATION
     Dosage: 02 COURSES
     Route: 065
     Dates: start: 20210125
  2. CARBOPLATIN. [Concomitant]
     Active Substance: CARBOPLATIN
     Indication: PRODUCT USED FOR UNKNOWN INDICATION
     Dosage: 02 COURSES
     Route: 065
     Dates: start: 20210125
  3. REVLIMID [Suspect]
     Active Substance: LENALIDOMIDE
     Indication: B-CELL LYMPHOMA
     Route: 048
  4. RITUXIMAB. [Concomitant]
     Active Substance: RITUXIMAB
     Dosage: 03 COURSES
     Route: 065
  5. RITUXIMAB. [Concomitant]
     Active Substance: RITUXIMAB
     Indication: B-CELL LYMPHOMA
     Dosage: 04 CURSES
     Route: 065
     Dates: start: 20180718
  6. IFOSFAMIDE. [Concomitant]
     Active Substance: IFOSFAMIDE
     Indication: PRODUCT USED FOR UNKNOWN INDICATION
     Dosage: 02 COURSES
     Route: 065
     Dates: start: 20210125
  7. RITUXIMAB. [Concomitant]
     Active Substance: RITUXIMAB
     Dosage: 02 COURSES
     Route: 065
     Dates: start: 20210125

REACTIONS (3)
  - B-cell lymphoma [Unknown]
  - Gastrointestinal haemorrhage [Fatal]
  - Treatment failure [Unknown]
